FAERS Safety Report 10341451 (Version 1)
Quarter: 2014Q3

REPORT INFORMATION
  Report Type: Spontaneous
  Country: US (occurrence: US)
  Receive Date: 20140725
  Receipt Date: 20140725
  Transmission Date: 20150326
  Serious: No
  Sender: FDA-Public Use
  Company Number: US-BIOGENIDEC-2014BI070360

PATIENT
  Age: 64 Year
  Sex: Female

DRUGS (9)
  1. NORCO [Concomitant]
     Active Substance: ACETAMINOPHEN\HYDROCODONE BITARTRATE
  2. CYMBALTA [Concomitant]
     Active Substance: DULOXETINE HYDROCHLORIDE
  3. CELEBREX [Concomitant]
     Active Substance: CELECOXIB
  4. AMLODIPINE BESYLATE. [Concomitant]
     Active Substance: AMLODIPINE BESYLATE
  5. GABAPENTIN. [Concomitant]
     Active Substance: GABAPENTIN
  6. TECFIDERA [Suspect]
     Active Substance: DIMETHYL FUMARATE
     Indication: MULTIPLE SCLEROSIS
     Route: 048
  7. ASPIRIN. [Concomitant]
     Active Substance: ASPIRIN
  8. SENNOSIDES-DOCUSATE SODIUM [Concomitant]
     Active Substance: DOCUSATE SODIUM\SENNOSIDES
  9. OMEPRAZOLE. [Concomitant]
     Active Substance: OMEPRAZOLE

REACTIONS (1)
  - Fatigue [Unknown]
